FAERS Safety Report 6582786-3 (Version None)
Quarter: 2010Q1

REPORT INFORMATION
  Report Type: 
  Country: None (occurrence: None)
  Receive Date: 20100216
  Receipt Date: 20100203
  Transmission Date: 20100710
  Serious: Yes (Hospitalization, Other)
  Sender: FDA-Public Use
  Company Number: US-PFIZER INC-2010015456

PATIENT
  Sex: Female

DRUGS (3)
  1. ERAXIS [Suspect]
     Dosage: UNK
  2. DIFLUCAN [Suspect]
     Dosage: UNK
  3. VANCOMYCIN [Suspect]
     Dosage: UNK

REACTIONS (2)
  - ANAPHYLACTIC SHOCK [None]
  - FUNGAL INFECTION [None]
